FAERS Safety Report 4836800-3 (Version None)
Quarter: 2005Q4

REPORT INFORMATION
  Report Type: 
  Country: None (occurrence: None)
  Receive Date: 20051123
  Receipt Date: 20051118
  Transmission Date: 20060501
  Serious: Yes (Hospitalization)
  Sender: FDA-Public Use
  Company Number: FR-ABBOTT-05P-056-0317605-00

PATIENT
  Sex: Female
  Weight: 82 kg

DRUGS (11)
  1. HUMIRA [Suspect]
     Indication: RHEUMATOID ARTHRITIS
     Route: 058
     Dates: start: 20050906, end: 20051103
  2. METHOTREXATE [Concomitant]
     Indication: RHEUMATOID ARTHRITIS
     Route: 048
     Dates: start: 20050504, end: 20051102
  3. METHOTREXATE [Concomitant]
     Route: 030
     Dates: start: 20051103
  4. PANTOPRAZOLE [Concomitant]
     Indication: PROPHYLAXIS AGAINST GASTROINTESTINAL ULCER
     Route: 048
     Dates: start: 20050504
  5. IXPRIM [Concomitant]
     Indication: ANALGESIC EFFECT
     Route: 048
     Dates: start: 20050504
  6. ACETAMINOPHEN [Concomitant]
     Indication: PAIN
     Route: 048
     Dates: start: 20050910
  7. SERETIDE [Concomitant]
     Indication: ASTHMA
     Route: 055
     Dates: start: 20051001
  8. PREDNISONE [Concomitant]
     Indication: RHEUMATOID ARTHRITIS
     Route: 048
     Dates: start: 20050504, end: 20050621
  9. PREDNISONE [Concomitant]
     Route: 048
     Dates: start: 20050622
  10. VIT B9 [Concomitant]
     Indication: PROPHYLAXIS
     Route: 048
     Dates: start: 20050504
  11. LEKOVIT CA [Concomitant]
     Indication: PROPHYLAXIS
     Route: 048
     Dates: start: 20050504

REACTIONS (1)
  - PYELONEPHRITIS [None]
